FAERS Safety Report 21878330 (Version 1)
Quarter: 2023Q1

REPORT INFORMATION
  Report Type: Spontaneous
  Country: FR (occurrence: None)
  Receive Date: 20230118
  Receipt Date: 20230118
  Transmission Date: 20230417
  Serious: Yes (Hospitalization)
  Sender: FDA-Public Use
  Company Number: FR-Orion Corporation ORION PHARMA-TREX2023-0007

PATIENT
  Age: 84 Year
  Sex: Female

DRUGS (6)
  1. METHOTREXATE SODIUM [Suspect]
     Active Substance: METHOTREXATE SODIUM
     Indication: Rheumatoid arthritis
     Dosage: STRENGTH: 10 MG
     Route: 048
     Dates: end: 20221019
  2. METHOTREXATE SODIUM [Suspect]
     Active Substance: METHOTREXATE SODIUM
     Route: 065
  3. CORDARONE [Concomitant]
     Active Substance: AMIODARONE HYDROCHLORIDE
     Dosage: STRENGTH: 200 MG
     Route: 048
  4. LAMALINE [Concomitant]
     Dosage: 1 OR 2 CAPSULES
     Route: 048
  5. ELIQUIS [Concomitant]
     Active Substance: APIXABAN
     Dosage: STRENGTH: 2.5 MG
     Route: 048
  6. FENOFIBRATE [Concomitant]
     Active Substance: FENOFIBRATE
     Dosage: STRENGTH: 145 MG
     Route: 048

REACTIONS (7)
  - Overdose [Unknown]
  - Contraindicated product administered [Unknown]
  - Toxicity to various agents [Unknown]
  - Myelodysplastic syndrome [Recovering/Resolving]
  - Diarrhoea [Unknown]
  - Campylobacter test positive [Unknown]
  - Streptococcus test positive [Unknown]

NARRATIVE: CASE EVENT DATE: 20221012
